FAERS Safety Report 6733132-3 (Version None)
Quarter: 2010Q2

REPORT INFORMATION
  Report Type: 
  Country: None (occurrence: None)
  Receive Date: 20100520
  Receipt Date: 20100517
  Transmission Date: 20101027
  Serious: Yes (Hospitalization)
  Sender: FDA-Public Use
  Company Number: US-BIOGENIDEC-2010BI014121

PATIENT
  Age: 62 Year
  Sex: Female
  Weight: 93 kg

DRUGS (15)
  1. TYSABRI [Suspect]
     Indication: MULTIPLE SCLEROSIS
     Route: 042
     Dates: start: 20070707
  2. WARFARIN SODIUM [Concomitant]
     Route: 048
  3. NEXIUM [Concomitant]
     Route: 048
  4. VITAMIN D [Concomitant]
     Route: 048
  5. CALTRATE [Concomitant]
     Route: 048
  6. MULTI-VITAMIN [Concomitant]
     Route: 048
  7. VESICARE [Concomitant]
     Route: 048
  8. AMANTADINE HCL [Concomitant]
     Route: 048
  9. TRAZODONE HCL [Concomitant]
     Route: 048
  10. LIPITOR [Concomitant]
     Route: 048
  11. CITALOPRAM HYDROBROMIDE [Concomitant]
     Route: 048
  12. CLONAEPAM [Concomitant]
     Route: 048
  13. ACTONEL [Concomitant]
     Route: 048
  14. RESTASIS [Concomitant]
  15. COLACE [Concomitant]
     Route: 048

REACTIONS (1)
  - PELVIC PROLAPSE [None]
